FAERS Safety Report 8990580 (Version 1)
Quarter: 2012Q4

REPORT INFORMATION
  Report Type: 
  Country: US (occurrence: US)
  Receive Date: 20121228
  Receipt Date: 20121228
  Transmission Date: 20130627
  Serious: No
  Sender: FDA-Public Use
  Company Number: US-BAYER-2012-132222

PATIENT
  Age: 49 Year
  Sex: Male

DRUGS (4)
  1. INTERFERON BETA - 1B [Suspect]
     Indication: MULTIPLE SCLEROSIS
     Route: 058
  2. STROVITE [Concomitant]
     Dosage: UNK
     Dates: start: 20081015, end: 20100215
  3. AMLODIPINE [Concomitant]
     Dosage: UNK
     Dates: start: 20080804
  4. INTERFERON BETA-1A [INTERFERON BETA-1A] [Concomitant]
     Dosage: 0.5 ?g/ml, UNK
     Dates: start: 20081015

REACTIONS (1)
  - No adverse event [Unknown]
